FAERS Safety Report 18239647 (Version 2)
Quarter: 2020Q4

REPORT INFORMATION
  Report Type: Report from Study
  Country: US (occurrence: US)
  Receive Date: 20200907
  Receipt Date: 20201012
  Transmission Date: 20210113
  Serious: No
  Sender: FDA-Public Use
  Company Number: US-SA-2020SA240222

PATIENT

DRUGS (1)
  1. DUPILUMAB [Suspect]
     Active Substance: DUPILUMAB
     Indication: NASAL POLYPS
     Dosage: 300 MG, QOW
     Route: 058
     Dates: start: 202008

REACTIONS (4)
  - Pollakiuria [Unknown]
  - Urinary tract disorder [Unknown]
  - Injection site pain [Unknown]
  - Urine flow decreased [Unknown]

NARRATIVE: CASE EVENT DATE: 2020
